FAERS Safety Report 10204199 (Version 2)
Quarter: 2014Q2

REPORT INFORMATION
  Report Type: Report from Study
  Country: PL (occurrence: PL)
  Receive Date: 20140529
  Receipt Date: 20140530
  Transmission Date: 20141212
  Serious: Yes (Death)
  Sender: FDA-Public Use
  Company Number: PL-PFIZER INC-2014144847

PATIENT
  Age: 7 Month
  Sex: Male

DRUGS (4)
  1. DOXORUBICIN HCL [Suspect]
     Indication: EWING^S SARCOMA
     Dosage: 60 MG/M2, CYCLIC
  2. ETOPOSIDE [Suspect]
     Indication: EWING^S SARCOMA
     Dosage: 450 MG/M2, CYCLIC
  3. VINCRISTINE [Suspect]
     Indication: EWING^S SARCOMA
     Dosage: 1.5 MG/M2, CYCLIC
  4. IFOSFAMIDE [Suspect]
     Indication: EWING^S SARCOMA
     Dosage: 9000 MG/M2, CYCLIC

REACTIONS (1)
  - Multi-organ failure [Fatal]
